FAERS Safety Report 8842723 (Version 2)
Quarter: 2013Q1

REPORT INFORMATION
  Report Type: Spontaneous
  Country: FR (occurrence: FR)
  Receive Date: 20121016
  Receipt Date: 20130117
  Transmission Date: 20140127
  Serious: Yes (Hospitalization)
  Sender: FDA-Public Use
  Company Number: FR-B.I. PHARMACEUTICALS,INC./RIDGEFIELD-2012-FF-01437FF

PATIENT
  Age: 88 Year
  Sex: Male
  Weight: 75 kg

DRUGS (2)
  1. PRADAXA [Suspect]
     Indication: ATRIAL FIBRILLATION
     Dosage: 220 MG
     Route: 048
     Dates: start: 201206, end: 20120824
  2. CORDARONE [Suspect]
     Dosage: 200 MG
     Route: 048
     Dates: start: 2009, end: 20120825

REACTIONS (2)
  - Subdural haematoma [Not Recovered/Not Resolved]
  - Electrocardiogram QT prolonged [Recovered/Resolved]
